FAERS Safety Report 7238334-8 (Version None)
Quarter: 2011Q1

REPORT INFORMATION
  Report Type: 
  Country: None (occurrence: None)
  Receive Date: 20110118
  Receipt Date: 20110107
  Transmission Date: 20110831
  Serious: Yes (Other)
  Sender: FDA-Public Use
  Company Number: 024132

PATIENT
  Age: 62 Year
  Sex: Female

DRUGS (1)
  1. LACOSAMIDE [Suspect]

REACTIONS (4)
  - CLAVICLE FRACTURE [None]
  - EATING DISORDER [None]
  - GRAND MAL CONVULSION [None]
  - STRESS [None]
